FAERS Safety Report 9193935 (Version 1)
Quarter: 2013Q1

REPORT INFORMATION
  Report Type: Spontaneous
  Country: US (occurrence: US)
  Receive Date: 20130327
  Receipt Date: 20130327
  Transmission Date: 20140127
  Serious: No
  Sender: FDA-Public Use
  Company Number: US-ASTRAZENECA-2013SE14803

PATIENT
  Sex: Male

DRUGS (1)
  1. LISINOPRIL HCT [Suspect]
     Route: 048

REACTIONS (1)
  - Blood pressure inadequately controlled [Unknown]
